FAERS Safety Report 8674696 (Version 3)
Quarter: 2012Q4

REPORT INFORMATION
  Report Type: 
  Country: US (occurrence: US)
  Receive Date: 20120720
  Receipt Date: 20121105
  Transmission Date: 20130627
  Serious: Yes (Disabling)
  Sender: FDA-Public Use
  Company Number: US-PERRIGO-12US002639

PATIENT
  Age: 47 Year
  Sex: Male
  Weight: 93.42 kg

DRUGS (2)
  1. MICONAZOLE NITRATE 2% 341 [Suspect]
     Indication: TINEA PEDIS
     Dosage: As directed, single
     Route: 061
     Dates: start: 20120319, end: 20120319
  2. ETODOLAC [Concomitant]
     Indication: BACK PAIN
     Dosage: UNK
     Route: 065
     Dates: start: 201111

REACTIONS (5)
  - Cellulitis [Recovered/Resolved]
  - Chemical injury [Recovered/Resolved]
  - Skin exfoliation [Recovered/Resolved]
  - Pain [Recovered/Resolved]
  - Erythema [Recovered/Resolved]
